FAERS Safety Report 6016524-X (Version None)
Quarter: 2008Q4

REPORT INFORMATION
  Report Type: 
  Country: None (occurrence: None)
  Receive Date: 20081222
  Receipt Date: 20081212
  Transmission Date: 20090506
  Serious: Yes (Disabling)
  Sender: FDA-Public Use
  Company Number: JP-ASTRAZENECA-2007AP04108

PATIENT
  Age: 45 Year
  Sex: Female
  Weight: 40 kg

DRUGS (3)
  1. ANAPEINE INJECTION [Suspect]
     Indication: EPIDURAL ANAESTHESIA
     Route: 008
     Dates: start: 20070612, end: 20070614
  2. MARCAINE HYDROCHLORIDE PRESERVATIVE FREE [Concomitant]
     Indication: SPINAL ANAESTHESIA
     Route: 029
     Dates: start: 20070612, end: 20070612
  3. CARBOCAIN INJECTION [Concomitant]
     Indication: EPIDURAL ANAESTHESIA
     Route: 008
     Dates: start: 20070612, end: 20070612

REACTIONS (1)
  - DIPLEGIA [None]
